FAERS Safety Report 10376088 (Version 3)
Quarter: 2015Q3

REPORT INFORMATION
  Report Type: Report from Study
  Country: US (occurrence: US)
  Receive Date: 20140811
  Receipt Date: 20150720
  Transmission Date: 20151125
  Serious: Yes (Hospitalization, Other)
  Sender: FDA-Public Use
  Company Number: US-BRISTOL-MYERS SQUIBB COMPANY-21284187

PATIENT
  Age: 41 Year
  Sex: Female
  Weight: 90.4 kg

DRUGS (1)
  1. IPILIMUMAB [Suspect]
     Active Substance: IPILIMUMAB
     Indication: SQUAMOUS CELL CARCINOMA
     Dosage: 10 MG/KG, QCYCLE
     Route: 042
     Dates: start: 20140605

REACTIONS (6)
  - Back pain [Unknown]
  - Hypercalcaemia [Not Recovered/Not Resolved]
  - Depression [Unknown]
  - Flank pain [Unknown]
  - Anxiety [Unknown]
  - Abdominal pain [Unknown]

NARRATIVE: CASE EVENT DATE: 20140731
